FAERS Safety Report 14947516 (Version 2)
Quarter: 2018Q4

REPORT INFORMATION
  Report Type: Spontaneous
  Country: JP (occurrence: JP)
  Receive Date: 20180529
  Receipt Date: 20181120
  Transmission Date: 20190204
  Serious: Yes (Other)
  Sender: FDA-Public Use
  Company Number: JP-BAUSCH-BL-2018-011845

PATIENT
  Age: 61 Year
  Sex: Male

DRUGS (3)
  1. VISUDYNE [Suspect]
     Active Substance: VERTEPORFIN
     Indication: NEOVASCULAR AGE-RELATED MACULAR DEGENERATION
  2. VISUDYNE [Suspect]
     Active Substance: VERTEPORFIN
     Indication: POLYPOIDAL CHOROIDAL VASCULOPATHY
     Route: 042
  3. EYLEA [Concomitant]
     Active Substance: AFLIBERCEPT
     Indication: PRODUCT USED FOR UNKNOWN INDICATION

REACTIONS (3)
  - Neovascular age-related macular degeneration [Unknown]
  - Disease progression [Unknown]
  - Polypoidal choroidal vasculopathy [Unknown]
